FAERS Safety Report 10350053 (Version 1)
Quarter: 2014Q3

REPORT INFORMATION
  Report Type: Spontaneous
  Country: US (occurrence: None)
  Receive Date: 20140728
  Receipt Date: 20140728
  Transmission Date: 20150326
  Serious: Yes (Death)
  Sender: FDA-Public Use
  Company Number: UNT-2014-004389

PATIENT
  Age: 56 Year
  Sex: Male
  Weight: 109.3 kg

DRUGS (2)
  1. REVATIO (SILDENAFIL CITRATE) [Concomitant]
  2. REMODULIN [Suspect]
     Active Substance: TREPROSTINIL
     Indication: PULMONARY ARTERIAL HYPERTENSION
     Dosage: 0.044 UG/KG, CONTINUING, SUBCUTANEOUS
     Route: 058
     Dates: start: 20140424

REACTIONS (1)
  - Death [None]

NARRATIVE: CASE EVENT DATE: 20140711
